FAERS Safety Report 11651795 (Version 1)
Quarter: 2015Q4

REPORT INFORMATION
  Report Type: Spontaneous
  Country: US (occurrence: None)
  Receive Date: 20151021
  Receipt Date: 20151021
  Transmission Date: 20160304
  Serious: Yes (Other)
  Sender: FDA-Public Use
  Company Number: None

PATIENT
  Age: 73 Year
  Sex: Female
  Weight: 62.14 kg

DRUGS (15)
  1. WARFARIN SODIUM. [Concomitant]
     Active Substance: WARFARIN SODIUM
  2. SYNTHROID [Concomitant]
     Active Substance: LEVOTHYROXINE SODIUM
  3. LASIX [Concomitant]
     Active Substance: FUROSEMIDE
  4. TYLENOL EXTRA STRENGTH [Concomitant]
     Active Substance: ACETAMINOPHEN
  5. METOPROLOL SUCC [Concomitant]
     Active Substance: METOPROLOL SUCCINATE
  6. OS*CAL CALCIUM + D [Concomitant]
  7. LIPITOR [Concomitant]
     Active Substance: ATORVASTATIN CALCIUM
  8. LISINOPRIL. [Concomitant]
     Active Substance: LISINOPRIL
  9. EYES-REFRESH TEARS [Concomitant]
  10. VITAMIN D3 [Suspect]
     Active Substance: CHOLECALCIFEROL
     Indication: VITAMIN D DECREASED
     Dates: start: 20151007, end: 20151007
  11. REFRESH P.M. [Concomitant]
     Active Substance: MINERAL OIL\PETROLATUM
  12. ONE A DAY WOMEN^S MULTIVITAMIN/MULTIMINERAL [Concomitant]
  13. PREVACID [Concomitant]
     Active Substance: LANSOPRAZOLE
  14. PREMARIN [Concomitant]
     Active Substance: ESTROGENS, CONJUGATED
  15. VITAMIN B12 [Concomitant]
     Active Substance: CYANOCOBALAMIN

REACTIONS (3)
  - Pruritus [None]
  - Hot flush [None]
  - Insomnia [None]

NARRATIVE: CASE EVENT DATE: 20151007
